FAERS Safety Report 5205160-0 (Version None)
Quarter: 2006Q4

REPORT INFORMATION
  Report Type: 
  Country: None (occurrence: None)
  Receive Date: 20061026
  Receipt Date: 20060808
  Transmission Date: 20070319
  Serious: Yes (Other)
  Sender: FDA-Public Use
  Company Number: 2006097645

PATIENT
  Age: 83 Year
  Sex: Female
  Weight: 70.3075 kg

DRUGS (5)
  1. LYRICA [Suspect]
     Indication: NEURALGIA
     Dosage: 50 MG (25 MG 2 IN 1 D) ORAL
     Route: 048
     Dates: start: 20060805
  2. THYROID TAB [Concomitant]
  3. CRESTOR [Concomitant]
  4. NIFEDIPINE [Concomitant]
  5. DITROPAN [Concomitant]

REACTIONS (2)
  - DIZZINESS [None]
  - VISION BLURRED [None]
